FAERS Safety Report 6824822-2 (Version None)
Quarter: 2010Q3

REPORT INFORMATION
  Report Type: 
  Country: None (occurrence: None)
  Receive Date: 20100708
  Receipt Date: 20100701
  Transmission Date: 20110219
  Serious: Yes (Hospitalization, Other)
  Sender: FDA-Public Use
  Company Number: BR-ABBOTT-09P-020-0606991-00

PATIENT
  Sex: Male
  Weight: 57 kg

DRUGS (9)
  1. HUMIRA [Suspect]
     Indication: CROHN'S DISEASE
     Route: 058
     Dates: start: 20081101, end: 20081101
  2. HUMIRA [Suspect]
     Route: 058
  3. HUMIRA [Suspect]
     Route: 058
  4. RIVOTRIL [Concomitant]
     Indication: SEDATIVE THERAPY
     Dosage: FORM STRENGTH : 0.5 MG1/2 TABLET
     Route: 048
  5. UNKNOWN THERAPY [Concomitant]
     Indication: VITAMIN SUPPLEMENTATION
     Route: 048
  6. METICORTEN [Concomitant]
     Indication: ANTIINFLAMMATORY THERAPY
     Dates: start: 20091001
  7. METICORTEN [Concomitant]
     Route: 048
     Dates: start: 20100129
  8. MODULEN [Concomitant]
     Indication: CROHN'S DISEASE
     Route: 051
     Dates: start: 20090401
  9. MODULEN [Concomitant]
     Dosage: 5 GLASSES DAILY
     Dates: start: 20100129

REACTIONS (10)
  - ANAEMIA [None]
  - APPLICATION SITE PAIN [None]
  - ASTHENIA [None]
  - DECREASED APPETITE [None]
  - PAIN [None]
  - PYREXIA [None]
  - SINUSITIS [None]
  - SKIN DISORDER [None]
  - STOMATITIS [None]
  - WEIGHT DECREASED [None]
